FAERS Safety Report 7743920-2 (Version None)
Quarter: 2011Q3

REPORT INFORMATION
  Report Type: 
  Country: None (occurrence: None)
  Receive Date: 20110912
  Receipt Date: 20110310
  Transmission Date: 20111222
  Serious: Yes (Hospitalization)
  Sender: FDA-Public Use
  Company Number: US-GLAXOSMITHKLINE-B0706529A

PATIENT
  Sex: Male
  Weight: 99.5 kg

DRUGS (7)
  1. HYDROCHLOROTHIAZIDE [Concomitant]
  2. TRICOR [Concomitant]
  3. GEMFIBROZIL [Concomitant]
  4. AVANDIA [Suspect]
     Indication: DIABETES MELLITUS
     Dosage: 4MG TWICE PER DAY
     Route: 048
  5. GLIPIZIDE [Concomitant]
  6. METFORMIN HCL [Concomitant]
  7. NORTRIPTYLINE HCL [Concomitant]

REACTIONS (4)
  - MYOCARDIAL INFARCTION [None]
  - ACUTE CORONARY SYNDROME [None]
  - CARDIOVASCULAR DISORDER [None]
  - CORONARY ARTERY DISEASE [None]
